FAERS Safety Report 10871676 (Version 1)
Quarter: 2015Q1

REPORT INFORMATION
  Report Type: Spontaneous
  Country: US (occurrence: None)
  Receive Date: 20150223
  Receipt Date: 20150223
  Transmission Date: 20150721
  Serious: No
  Sender: FDA-Public Use
  Company Number: None

PATIENT
  Age: 76 Year
  Sex: Female

DRUGS (4)
  1. HCTZ [Concomitant]
     Active Substance: HYDROCHLOROTHIAZIDE
  2. CALCIUM [Concomitant]
     Active Substance: CALCIUM
  3. GLEEVEC [Suspect]
     Active Substance: IMATINIB MESYLATE
     Indication: GASTROINTESTINAL STROMAL CANCER
     Route: 048
     Dates: start: 20141102, end: 20150205
  4. ASA [Concomitant]
     Active Substance: ASPIRIN

REACTIONS (5)
  - Blister [None]
  - Rash [None]
  - Erythema [None]
  - Skin exfoliation [None]
  - Skin disorder [None]
